FAERS Safety Report 9799498 (Version 2)
Quarter: 2014Q1

REPORT INFORMATION
  Report Type: Spontaneous
  Country: JP (occurrence: JP)
  Receive Date: 20140106
  Receipt Date: 20140214
  Transmission Date: 20141002
  Serious: Yes (Other)
  Sender: FDA-Public Use
  Company Number: JP-TAKEDA-2013TJP004297

PATIENT
  Sex: 0

DRUGS (1)
  1. NESINA TABLETS 25MG [Suspect]
     Dosage: 25 MG QD
     Route: 064

REACTIONS (1)
  - Cytogenetic abnormality [Unknown]
